FAERS Safety Report 7273395-1 (Version None)
Quarter: 2011Q1

REPORT INFORMATION
  Report Type: 
  Country: None (occurrence: None)
  Receive Date: 20110203
  Receipt Date: 20100805
  Transmission Date: 20110831
  Serious: No
  Sender: FDA-Public Use
  Company Number: US-ABBOTT-10P-163-0662479-00

PATIENT
  Sex: Female
  Weight: 70.37 kg

DRUGS (5)
  1. NIFEDIPINE [Concomitant]
     Indication: HYPERTENSION
  2. CHOLESTYRAMINE [Concomitant]
     Indication: BLOOD CHOLESTEROL
     Dosage: 1 PKT D
     Route: 048
  3. BENICAR [Concomitant]
     Indication: HYPERTENSION
  4. CENTRUM SILVER [Concomitant]
     Indication: PRODUCT USED FOR UNKNOWN INDICATION
     Route: 048
  5. SYNTHROID [Suspect]
     Indication: GOITRE
     Route: 048

REACTIONS (1)
  - SENSATION OF FOREIGN BODY [None]
